FAERS Safety Report 23697807 (Version 2)
Quarter: 2024Q2

REPORT INFORMATION
  Report Type: Spontaneous
  Country: JP (occurrence: None)
  Receive Date: 20240402
  Receipt Date: 20240411
  Transmission Date: 20240716
  Serious: Yes (Other)
  Sender: FDA-Public Use
  Company Number: 2024A075900

PATIENT
  Age: 38 Year
  Sex: Female

DRUGS (10)
  1. FULVESTRANT [Suspect]
     Active Substance: FULVESTRANT
     Indication: Breast cancer recurrent
     Route: 030
     Dates: start: 202202
  2. FULVESTRANT [Suspect]
     Active Substance: FULVESTRANT
     Indication: Metastases to lung
     Route: 030
     Dates: start: 202202
  3. FULVESTRANT [Suspect]
     Active Substance: FULVESTRANT
     Indication: Breast cancer recurrent
     Route: 030
  4. FULVESTRANT [Suspect]
     Active Substance: FULVESTRANT
     Indication: Metastases to lung
     Route: 030
  5. ABEMACICLIB [Suspect]
     Active Substance: ABEMACICLIB
     Indication: Breast cancer recurrent
     Route: 048
  6. ABEMACICLIB [Suspect]
     Active Substance: ABEMACICLIB
     Indication: Metastases to lung
     Route: 048
  7. TAMOXIFEN [Concomitant]
     Active Substance: TAMOXIFEN
  8. EPIRUBICIN [Concomitant]
     Active Substance: EPIRUBICIN
  9. CYCLOPHOSPHAMIDE [Concomitant]
     Active Substance: CYCLOPHOSPHAMIDE
  10. LEUPROLIDE [Concomitant]
     Active Substance: LEUPROLIDE

REACTIONS (1)
  - Myelodysplastic syndrome [Unknown]
